FAERS Safety Report 10606088 (Version 1)
Quarter: 2014Q4

REPORT INFORMATION
  Report Type: Spontaneous
  Country: NL (occurrence: None)
  Receive Date: 20141121
  Receipt Date: 20141121
  Transmission Date: 20150529
  Serious: Yes (Life-Threatening)
  Sender: FDA-Public Use
  Company Number: FK201405332

PATIENT
  Age: 70 Year
  Sex: Female

DRUGS (7)
  1. METHYLPREDNISOLONE. [Suspect]
     Active Substance: METHYLPREDNISOLONE
     Indication: PREMEDICATION
     Dosage: TWICE WITHIN TWO WEEKS, NOT OTHERWISE SPECIFIED
     Route: 042
  2. ACETAMINOPHEN (PARACETAMOL) [Suspect]
     Active Substance: ACETAMINOPHEN
     Indication: PREMEDICATION
     Dosage: TWICE WITHIN TWO WEEKS
     Route: 048
  3. RITUXIMAB (RITUXIMAB) [Suspect]
     Active Substance: RITUXIMAB
     Indication: RHEUMATOID ARTHRITIS
     Dosage: TWICE WITHIN TWO WEEKS, NOT OTHERWISE SPECIFIED
     Route: 042
  4. ACETYLSALYCILIC ACID [Concomitant]
  5. PREDNISOLONE (PREDNISOLONE) [Concomitant]
     Active Substance: PREDNISOLONE
  6. LEVOTHYROXINE SODIUM (LEVOTHYROXINE SODIUM) [Concomitant]
  7. DIPHENHYDRAMINE [Suspect]
     Active Substance: DIPHENHYDRAMINE
     Indication: PREMEDICATION
     Dosage: TWICE WITHIN TWO WEEKS, NOT OTHERWISE SPECIFIED
     Route: 042

REACTIONS (2)
  - Cardiac arrest [None]
  - Myocardial infarction [None]
